FAERS Safety Report 4692894-X (Version None)
Quarter: 2005Q2

REPORT INFORMATION
  Report Type: 
  Country: None (occurrence: None)
  Receive Date: 20050615
  Receipt Date: 20050526
  Transmission Date: 20051028
  Serious: Yes (Death)
  Sender: FDA-Public Use
  Company Number: JP_050506651

PATIENT
  Age: 81 Year
  Sex: Male

DRUGS (1)
  1. PERMAX [Suspect]
     Dosage: 250 UG DAY
     Dates: start: 19980501

REACTIONS (1)
  - PNEUMONITIS [None]
